FAERS Safety Report 7411570-3 (Version None)
Quarter: 2011Q2

REPORT INFORMATION
  Report Type: 
  Country: None (occurrence: None)
  Receive Date: 20110413
  Receipt Date: 20100909
  Transmission Date: 20111010
  Serious: Yes (Other)
  Sender: FDA-Public Use
  Company Number: US-BRISTOL-MYERS SQUIBB COMPANY-15269285

PATIENT
  Age: 73 Year
  Sex: Female

DRUGS (2)
  1. ERBITUX [Suspect]
     Indication: HEAD AND NECK CANCER
     Dosage: ROUTE OF ADMINISTRATION: IVPB
     Route: 042
     Dates: start: 20100902
  2. BENADRYL [Concomitant]
     Indication: PREMEDICATION

REACTIONS (1)
  - URTICARIA [None]
